FAERS Safety Report 8240551-5 (Version None)
Quarter: 2012Q1

REPORT INFORMATION
  Report Type: 
  Country: None (occurrence: None)
  Receive Date: 20120328
  Receipt Date: 20120313
  Transmission Date: 20120608
  Serious: Yes (Hospitalization)
  Sender: FDA-Public Use
  Company Number: IT-ROCHE-1049160

PATIENT
  Sex: Male

DRUGS (7)
  1. LEVOTIROXINA [Concomitant]
     Route: 048
     Dates: start: 20080529
  2. PANTOPRAZOLE [Concomitant]
     Route: 048
     Dates: start: 20120101
  3. VEMURAFENIB [Suspect]
     Indication: NEOPLASM
     Dosage: LAST DOSE PRIOR TO SAE WAS ON 06/MAR/2012
     Route: 048
     Dates: start: 20120301
  4. CHOLECALCIFEROL [Concomitant]
     Dosage: 25000 INTERNATIONAL UNITS
     Route: 048
     Dates: start: 20110701
  5. DALTEPARIN SODIUM [Concomitant]
     Dosage: 10000 INTERNATIONAL UNITS
     Route: 058
     Dates: start: 20120225
  6. DEXAMETHASONE [Concomitant]
     Dosage: 16 DROPS
     Route: 048
     Dates: start: 20111101
  7. DALTEPARIN SODIUM [Concomitant]
     Indication: PULMONARY EMBOLISM
     Dosage: 15000 INTERNATIONAL UNITS
     Route: 058
     Dates: start: 20120124, end: 20120224

REACTIONS (2)
  - LIPASE INCREASED [None]
  - AMYLASE INCREASED [None]
